FAERS Safety Report 9049964 (Version 1)
Quarter: 2013Q1

REPORT INFORMATION
  Report Type: Spontaneous
  Country: BR (occurrence: BR)
  Receive Date: 20130205
  Receipt Date: 20130205
  Transmission Date: 20140127
  Serious: Yes (Other)
  Sender: FDA-Public Use
  Company Number: BR-ELI_LILLY_AND_COMPANY-BR201301008943

PATIENT
  Age: 85 None
  Sex: Male
  Weight: 65 kg

DRUGS (4)
  1. HUMULIN NPH [Suspect]
     Indication: DIABETES MELLITUS
     Dosage: 30 IU, EACH MORNING
     Route: 058
     Dates: start: 201001
  2. HUMULIN NPH [Suspect]
     Dosage: 16 IU, EACH EVENING
     Route: 058
     Dates: start: 201001
  3. SINVASTATINA [Concomitant]
     Dosage: UNK, UNKNOWN
     Route: 065
  4. ATENOLOL [Concomitant]
     Dosage: UNK, UNKNOWN
     Route: 065

REACTIONS (4)
  - Blood glucose increased [Not Recovered/Not Resolved]
  - Hyperglycaemia [Not Recovered/Not Resolved]
  - Diabetes mellitus inadequate control [Not Recovered/Not Resolved]
  - Blood glucose decreased [Not Recovered/Not Resolved]
